FAERS Safety Report 15846903 (Version 1)
Quarter: 2019Q1

REPORT INFORMATION
  Report Type: Spontaneous
  Country: US (occurrence: US)
  Receive Date: 20190121
  Receipt Date: 20190121
  Transmission Date: 20190417
  Serious: No
  Sender: FDA-Public Use
  Company Number: US-ASTRAZENECA-2019SE06734

PATIENT
  Age: 50 Year
  Sex: Female
  Weight: 77.1 kg

DRUGS (12)
  1. NEXIUM [Suspect]
     Active Substance: ESOMEPRAZOLE MAGNESIUM
     Indication: ULCERATIVE GASTRITIS
     Route: 048
     Dates: end: 201701
  2. NEXIUM 24HR [Suspect]
     Active Substance: ESOMEPRAZOLE MAGNESIUM
     Indication: GASTROOESOPHAGEAL REFLUX DISEASE
     Route: 048
     Dates: start: 20181218, end: 20190110
  3. NEXIUM [Suspect]
     Active Substance: ESOMEPRAZOLE MAGNESIUM
     Indication: GASTROOESOPHAGEAL REFLUX DISEASE
     Route: 048
     Dates: start: 201702, end: 20181217
  4. VITAMI B12 [Concomitant]
     Indication: VITAMIN SUPPLEMENTATION
     Route: 048
  5. NORCO [Concomitant]
     Active Substance: ACETAMINOPHEN\HYDROCODONE BITARTRATE
     Indication: ARTHRITIS
     Dosage: 10.0MG AS REQUIRED
     Route: 048
     Dates: start: 2009
  6. NEXIUM [Suspect]
     Active Substance: ESOMEPRAZOLE MAGNESIUM
     Indication: GASTROOESOPHAGEAL REFLUX DISEASE
     Route: 048
     Dates: end: 201701
  7. NEXIUM [Suspect]
     Active Substance: ESOMEPRAZOLE MAGNESIUM
     Indication: ULCERATIVE GASTRITIS
     Route: 048
     Dates: start: 201701, end: 201702
  8. NEXIUM [Suspect]
     Active Substance: ESOMEPRAZOLE MAGNESIUM
     Indication: GASTROOESOPHAGEAL REFLUX DISEASE
     Route: 048
     Dates: start: 201701, end: 201702
  9. NEXIUM [Suspect]
     Active Substance: ESOMEPRAZOLE MAGNESIUM
     Indication: ULCERATIVE GASTRITIS
     Route: 048
     Dates: start: 201702, end: 20181217
  10. NEXIUM 24HR [Suspect]
     Active Substance: ESOMEPRAZOLE MAGNESIUM
     Indication: ULCERATIVE GASTRITIS
     Route: 048
     Dates: start: 20181218, end: 20190110
  11. HCTZ [Concomitant]
     Active Substance: HYDROCHLOROTHIAZIDE
     Indication: HYPERTENSION
     Route: 048
     Dates: start: 2009
  12. VITMAIN B COMPLEX WITH VITAMIN C [Concomitant]
     Indication: VITAMIN SUPPLEMENTATION
     Route: 048

REACTIONS (10)
  - Arthritis [Unknown]
  - Malaise [Unknown]
  - Gastrooesophageal reflux disease [Unknown]
  - Frustration tolerance decreased [Unknown]
  - Drug ineffective [Unknown]
  - Vomiting [Unknown]
  - Off label use [Unknown]
  - Product use in unapproved indication [Unknown]
  - Autoimmune hepatitis [Unknown]
  - Therapy cessation [Unknown]

NARRATIVE: CASE EVENT DATE: 2009
